FAERS Safety Report 13775198 (Version 1)
Quarter: 2017Q3

REPORT INFORMATION
  Report Type: Spontaneous
  Country: US (occurrence: US)
  Receive Date: 20170720
  Receipt Date: 20170720
  Transmission Date: 20171127
  Serious: Yes (Hospitalization)
  Sender: FDA-Public Use
  Company Number: None

PATIENT
  Age: 60 Year
  Sex: Female

DRUGS (18)
  1. GENERLAC [Concomitant]
     Active Substance: LACTULOSE
  2. XIFAXAN [Concomitant]
     Active Substance: RIFAXIMIN
  3. DOXYCYCL HYE [Concomitant]
  4. OXYCODONE [Concomitant]
     Active Substance: OXYCODONE
  5. SPIRONOLACT [Concomitant]
  6. ZOLPIDEM [Concomitant]
     Active Substance: ZOLPIDEM\ZOLPIDEM TARTRATE
  7. PROAIR HFA [Concomitant]
     Active Substance: ALBUTEROL SULFATE
  8. RANITIDINE. [Concomitant]
     Active Substance: RANITIDINE
  9. WARFARIN [Concomitant]
     Active Substance: WARFARIN
  10. FUROSEMIDE. [Concomitant]
     Active Substance: FUROSEMIDE
  11. VITAMIN D [Concomitant]
     Active Substance: CHOLECALCIFEROL
  12. SYMBICORT [Concomitant]
     Active Substance: BUDESONIDE\FORMOTEROL FUMARATE DIHYDRATE
  13. GABAPENTIN. [Concomitant]
     Active Substance: GABAPENTIN
  14. LEVOTHYROXIN [Concomitant]
     Active Substance: LEVOTHYROXINE
  15. PREDNISONE. [Concomitant]
     Active Substance: PREDNISONE
  16. OCALIVA [Suspect]
     Active Substance: OBETICHOLIC ACID
     Indication: BILIARY CIRRHOSIS PRIMARY
     Route: 048
     Dates: start: 20161231
  17. HYDROXYZ HCL [Concomitant]
     Active Substance: HYDROXYZINE HYDROCHLORIDE
  18. OMEGA-3 ACID [Concomitant]

REACTIONS (2)
  - Liver disorder [None]
  - Drug dose omission [None]

NARRATIVE: CASE EVENT DATE: 20170630
